FAERS Safety Report 13528061 (Version 1)
Quarter: 2017Q2

REPORT INFORMATION
  Report Type: Spontaneous
  Country: GB (occurrence: GB)
  Receive Date: 20170509
  Receipt Date: 20170509
  Transmission Date: 20170830
  Serious: Yes (Other)
  Sender: FDA-Public Use
  Company Number: GB-GILEAD-2017-0271535

PATIENT
  Sex: Female

DRUGS (7)
  1. RALTEGRAVIR. [Concomitant]
     Active Substance: RALTEGRAVIR
     Indication: HIV INFECTION
     Route: 065
  2. ENTECAVIR. [Concomitant]
     Active Substance: ENTECAVIR
     Indication: HEPATITIS B
     Dosage: UNK, QOD
     Route: 065
  3. VIREAD [Suspect]
     Active Substance: TENOFOVIR DISOPROXIL FUMARATE
     Indication: HEPATITIS B
     Dosage: UNK, QOD
     Route: 065
  4. EMTRICITABINE [Suspect]
     Active Substance: EMTRICITABINE
     Indication: HIV INFECTION
     Route: 065
  5. MARAVIROC [Concomitant]
     Active Substance: MARAVIROC
     Indication: HIV INFECTION
     Route: 065
  6. VIREAD [Suspect]
     Active Substance: TENOFOVIR DISOPROXIL FUMARATE
     Dosage: UNK, QD
     Route: 065
  7. ATAZANAVIR [Concomitant]
     Active Substance: ATAZANAVIR
     Indication: HIV INFECTION
     Route: 065

REACTIONS (4)
  - Renal impairment [Unknown]
  - Alopecia [Unknown]
  - Osteoporosis [Unknown]
  - Spinal fracture [Unknown]
